FAERS Safety Report 5743277-2 (Version None)
Quarter: 2008Q2

REPORT INFORMATION
  Report Type: 
  Country: None (occurrence: None)
  Receive Date: 20080519
  Receipt Date: 20080508
  Transmission Date: 20081010
  Serious: Yes (Hospitalization)
  Sender: FDA-Public Use
  Company Number: ES-PFIZER INC-2006145222

PATIENT
  Age: 76 Year
  Sex: Male

DRUGS (5)
  1. NORMULEN [Suspect]
     Dosage: TEXT:100MG/0.4MG
     Route: 048
     Dates: start: 20051107, end: 20051117
  2. AMOXICILLIN + CLAVULANATE POTASSIUM [Suspect]
     Indication: PHLEBITIS
     Route: 048
     Dates: start: 20051107, end: 20051121
  3. AMOXICILLIN + CLAVULANATE POTASSIUM [Suspect]
     Indication: THROMBOPHLEBITIS
  4. ENOXAPARIN SODIUM [Suspect]
     Indication: PHLEBITIS
     Dosage: DAILY DOSE:40MG
     Route: 058
     Dates: start: 20051107, end: 20051121
  5. ENOXAPARIN SODIUM [Suspect]
     Indication: THROMBOPHLEBITIS

REACTIONS (1)
  - HEPATITIS CHOLESTATIC [None]
